FAERS Safety Report 5374360-1 (Version None)
Quarter: 2007Q2

REPORT INFORMATION
  Report Type: 
  Country: None (occurrence: None)
  Receive Date: 20070629
  Receipt Date: 20070620
  Transmission Date: 20071010
  Serious: Yes (Hospitalization)
  Sender: FDA-Public Use
  Company Number: PHBS2007JP10651

PATIENT
  Sex: Male

DRUGS (4)
  1. ZOMETA [Suspect]
     Indication: METASTASES TO BONE
     Dosage: 4 MG, UNK
     Route: 042
     Dates: start: 20061102
  2. UFT [Concomitant]
     Dosage: 4 DF, UNK
     Route: 048
  3. IMUNACE [Concomitant]
     Dosage: 700 KIU, UNK
  4. MOBIC [Concomitant]
     Dosage: 1 DF, UNK
     Route: 048

REACTIONS (3)
  - OSTEONECROSIS [None]
  - PYREXIA [None]
  - TOOTHACHE [None]
